FAERS Safety Report 6920031-7 (Version None)
Quarter: 2010Q3

REPORT INFORMATION
  Report Type: 
  Country: None (occurrence: None)
  Receive Date: 20100730
  Receipt Date: 20090624
  Transmission Date: 20110219
  Serious: Yes (Death)
  Sender: FDA-Public Use
  Company Number: OMPQ-PR-0906S-0459

PATIENT
  Age: 82 Year
  Sex: Male

DRUGS (4)
  1. OMNIPAQUE 140 [Suspect]
     Indication: AORTIC ANEURYSM
     Dosage: 150 ML, SINGLE DOSE, I.V.
     Route: 042
     Dates: start: 20090623, end: 20090623
  2. ANTIHYPERTENSIVE (-S) [Concomitant]
  3. GLIMEPIRIDE [Concomitant]
  4. FLUTICASONE PROPIONATE/SALMETEROL INHALER (ADVAIR) [Concomitant]

REACTIONS (7)
  - ANAPHYLACTOID SHOCK [None]
  - CARDIAC ARREST [None]
  - DYSPNOEA [None]
  - HYPOTENSION [None]
  - LOSS OF CONSCIOUSNESS [None]
  - PULMONARY OEDEMA [None]
  - PULSE PRESSURE DECREASED [None]
